FAERS Safety Report 13953591 (Version 3)
Quarter: 2019Q3

REPORT INFORMATION
  Report Type: Spontaneous
  Country: US (occurrence: US)
  Receive Date: 20170911
  Receipt Date: 20190708
  Transmission Date: 20191004
  Serious: No
  Sender: FDA-Public Use
  Company Number: US-PFIZER INC-2017390395

PATIENT
  Age: 77 Year
  Sex: Female

DRUGS (6)
  1. BYSTOLIC [Suspect]
     Active Substance: NEBIVOLOL HYDROCHLORIDE
     Dosage: UNK
  2. MINOXIDIL. [Suspect]
     Active Substance: MINOXIDIL
     Dosage: UNK
  3. CEFADROXIL. [Suspect]
     Active Substance: CEFADROXIL
     Dosage: UNK
  4. IMDUR [Suspect]
     Active Substance: ISOSORBIDE MONONITRATE
     Dosage: UNK
  5. EPLERENONE. [Suspect]
     Active Substance: EPLERENONE
     Dosage: UNK
  6. NIFEDIPINE. [Suspect]
     Active Substance: NIFEDIPINE
     Dosage: UNK

REACTIONS (1)
  - Drug hypersensitivity [Unknown]
